FAERS Safety Report 12145907 (Version 1)
Quarter: 2016Q1

REPORT INFORMATION
  Report Type: Spontaneous
  Country: US (occurrence: None)
  Receive Date: 20160303
  Receipt Date: 20160303
  Transmission Date: 20160526
  Serious: No
  Sender: FDA-Public Use
  Company Number: None

PATIENT
  Age: 56 Year
  Sex: Female

DRUGS (2)
  1. TEMOZOLOMIDE 20MG SANDOZ INC. A NOVARTIS COMPANY [Suspect]
     Active Substance: TEMOZOLOMIDE
     Indication: DRUG THERAPY
     Dosage: 20MG 5DAYS PER 28 DAY BY MOUTH
     Route: 048
     Dates: start: 20151201
  2. TEMOZOLOMIDE 100MG SANDOZ INC. A NOVARTIS COMPANY [Suspect]
     Active Substance: TEMOZOLOMIDE
     Indication: DRUG THERAPY
     Dosage: 300MG 5DAYS PER 28 DAY BY MOUTH
     Route: 048
     Dates: start: 20151201

REACTIONS (2)
  - Seizure [None]
  - Paraesthesia [None]

NARRATIVE: CASE EVENT DATE: 20160227
